FAERS Safety Report 25953497 (Version 1)
Quarter: 2025Q4

REPORT INFORMATION
  Report Type: Spontaneous
  Country: EU (occurrence: EU)
  Receive Date: 20251023
  Receipt Date: 20251023
  Transmission Date: 20260117
  Serious: Yes (Hospitalization, Other)
  Sender: NOVO NORDISK
  Company Number: EU-NOVOPROD-1540009

PATIENT
  Age: 46 Year
  Sex: Female

DRUGS (1)
  1. OZEMPIC [Suspect]
     Active Substance: SEMAGLUTIDE
     Indication: Product used for unknown indication
     Dosage: 1 G, QW

REACTIONS (4)
  - Pancreatic cyst [Unknown]
  - Pancreatitis acute [Unknown]
  - Impaired gastric emptying [Not Recovered/Not Resolved]
  - Product use issue [Unknown]
